FAERS Safety Report 23123756 (Version 2)
Quarter: 2023Q4

REPORT INFORMATION
  Report Type: Report from Study
  Country: US (occurrence: US)
  Receive Date: 20231030
  Receipt Date: 20231103
  Transmission Date: 20240110
  Serious: Yes (Hospitalization)
  Sender: FDA-Public Use
  Company Number: US-Eisai-EC-2023-151295

PATIENT
  Age: 70 Year
  Sex: Female
  Weight: 69.5 kg

DRUGS (4)
  1. LENVATINIB [Suspect]
     Active Substance: LENVATINIB
     Indication: Ovarian cancer stage III
     Dosage: QD, 4 MONTHS 23 DAYS
     Route: 048
     Dates: start: 20230523, end: 20231015
  2. LENVATINIB [Suspect]
     Active Substance: LENVATINIB
     Indication: Ovarian epithelial cancer recurrent
  3. PEMBROLIZUMAB [Suspect]
     Active Substance: PEMBROLIZUMAB
     Indication: Ovarian cancer stage III
     Dosage: Q3W, 3 MONTHS 16 DAYS
     Dates: start: 20230613, end: 20230928
  4. PEMBROLIZUMAB [Suspect]
     Active Substance: PEMBROLIZUMAB
     Indication: Ovarian epithelial cancer recurrent

REACTIONS (1)
  - Pancreatitis [Unknown]

NARRATIVE: CASE EVENT DATE: 20231018
